FAERS Safety Report 12169811 (Version 5)
Quarter: 2023Q1

REPORT INFORMATION
  Report Type: Report from Study
  Country: US (occurrence: US)
  Receive Date: 20160310
  Receipt Date: 20230227
  Transmission Date: 20230418
  Serious: Yes (Other)
  Sender: FDA-Public Use
  Company Number: US-JAZZ-2016-US-004357

PATIENT
  Age: 39 Year
  Sex: Female

DRUGS (16)
  1. XYREM [Suspect]
     Active Substance: SODIUM OXYBATE
     Indication: Narcolepsy
     Dosage: 2.25 GRAM, BID
     Route: 048
     Dates: start: 200502, end: 200502
  2. XYREM [Suspect]
     Active Substance: SODIUM OXYBATE
     Indication: Cataplexy
     Dosage: UNK
     Route: 048
     Dates: start: 200502, end: 200610
  3. XYREM [Suspect]
     Active Substance: SODIUM OXYBATE
     Indication: Somnolence
     Dosage: 3.75 GRAM, BID
     Route: 048
     Dates: start: 200610
  4. ASACOL HD [Concomitant]
     Active Substance: MESALAMINE
     Indication: Product used for unknown indication
     Dosage: UNK
  5. CALCIUM [Concomitant]
     Active Substance: CALCIUM
     Indication: Product used for unknown indication
     Dosage: UNK
  6. EFFEXOR [Concomitant]
     Active Substance: VENLAFAXINE HYDROCHLORIDE
     Indication: Product used for unknown indication
     Dosage: UNK
  7. TEA LEAF [Concomitant]
     Active Substance: TEA LEAF
     Indication: Product used for unknown indication
     Dosage: UNK
     Dates: end: 20080302
  8. LISINOPRIL [Concomitant]
     Active Substance: LISINOPRIL
     Indication: Product used for unknown indication
     Dosage: UNK
  9. MICROGESTIN FE [Concomitant]
     Active Substance: ETHINYL ESTRADIOL\FERROUS FUMARATE\NORETHINDRONE ACETATE
     Indication: Product used for unknown indication
     Dosage: UNK
  10. NASONEX [Concomitant]
     Active Substance: MOMETASONE FUROATE
     Indication: Product used for unknown indication
     Dosage: UNK
     Dates: end: 20160126
  11. RHINOCORT AQUA [Concomitant]
     Active Substance: BUDESONIDE
     Indication: Product used for unknown indication
     Dosage: UNK
  12. CYANOCOBALAMIN [Concomitant]
     Active Substance: CYANOCOBALAMIN
     Indication: Product used for unknown indication
     Dosage: UNK
  13. PENTASA [Concomitant]
     Active Substance: MESALAMINE
     Indication: Product used for unknown indication
  14. HYDROCHLOROTHIAZIDE\LISINOPRIL [Concomitant]
     Active Substance: HYDROCHLOROTHIAZIDE\LISINOPRIL
     Indication: Product used for unknown indication
     Dosage: 20-12.5 MG
     Dates: start: 20221130
  15. OSTEO BI-FLEX [CHONDROITIN SULFATE;GLUCOSAMINE HYDROCHLORIDE] [Concomitant]
     Indication: Product used for unknown indication
     Dosage: UNK
     Dates: start: 20220201
  16. FISH OIL [Concomitant]
     Active Substance: FISH OIL
     Indication: Product used for unknown indication
     Dosage: 1,200 MG SOFTGEL

REACTIONS (6)
  - Foot operation [Unknown]
  - Vitamin B12 deficiency [Recovered/Resolved]
  - Vitamin D increased [Unknown]
  - Blood calcium increased [Unknown]
  - Hypertension [Unknown]
  - Anxiety [Recovered/Resolved]

NARRATIVE: CASE EVENT DATE: 20050501
